FAERS Safety Report 15582310 (Version 2)
Quarter: 2018Q4

REPORT INFORMATION
  Report Type: Spontaneous
  Country: US (occurrence: US)
  Receive Date: 20181102
  Receipt Date: 20181112
  Transmission Date: 20190205
  Serious: Yes (Other)
  Sender: FDA-Public Use
  Company Number: US-RADIUS HEALTH INC.-2018US002670

PATIENT
  Age: 59 Year
  Sex: Female

DRUGS (1)
  1. TYMLOS [Suspect]
     Active Substance: ABALOPARATIDE
     Indication: OSTEOPOROSIS POSTMENOPAUSAL
     Dosage: 80 MCG, ONCE A DAY
     Route: 058
     Dates: start: 20181024, end: 20181024

REACTIONS (9)
  - Dysphagia [Recovering/Resolving]
  - Aphonia [Recovering/Resolving]
  - Myocardial infarction [Unknown]
  - Chest pain [Recovering/Resolving]
  - Swollen tongue [Recovering/Resolving]
  - Chest discomfort [Recovering/Resolving]
  - Back pain [Recovering/Resolving]
  - Paraesthesia oral [Recovering/Resolving]
  - Dysphonia [Recovering/Resolving]

NARRATIVE: CASE EVENT DATE: 20181024
